FAERS Safety Report 6427763-8 (Version None)
Quarter: 2009Q4

REPORT INFORMATION
  Report Type: 
  Country: None (occurrence: None)
  Receive Date: 20091030
  Receipt Date: 20091016
  Transmission Date: 20100525
  Serious: Yes (Hospitalization, Other)
  Sender: FDA-Public Use
  Company Number: 000938

PATIENT
  Sex: Female
  Weight: 74.8435 kg

DRUGS (7)
  1. LACOSAMIDE [Suspect]
     Indication: EPILEPSY
     Dosage: (150 MG BID, ORAL), (200 MG BID ORAL)
     Route: 048
     Dates: start: 20060330, end: 20060405
  2. LACOSAMIDE [Suspect]
     Indication: EPILEPSY
     Dosage: (150 MG BID, ORAL), (200 MG BID ORAL)
     Route: 048
     Dates: start: 20060406, end: 20090615
  3. ORTHA EVRA [Concomitant]
  4. BENADRYL ALLERGY /0000042/ [Concomitant]
  5. TYLENOL SINUS MEDICATION [Concomitant]
  6. IRON [Concomitant]
  7. VALTREX [Concomitant]

REACTIONS (1)
  - GRAND MAL CONVULSION [None]
